FAERS Safety Report 24406605 (Version 2)
Quarter: 2024Q4

REPORT INFORMATION
  Report Type: Spontaneous
  Country: US (occurrence: US)
  Receive Date: 20241007
  Receipt Date: 20241105
  Transmission Date: 20250114
  Serious: Yes (Other)
  Sender: BAYER HEALTHCARE PHARMACEUTICALS INC.
  Company Number: US-BAYER-2024A140936

PATIENT
  Age: 62 Year
  Sex: Male

DRUGS (2)
  1. JIVI [Suspect]
     Active Substance: DAMOCTOCOG ALFA PEGOL
     Dosage: JIVI 1083 UNITS/2000 UNITS
  2. JIVI [Suspect]
     Active Substance: DAMOCTOCOG ALFA PEGOL
     Dosage: 5 OF THE (1000 UNITS)/ 3500 UNITS

REACTIONS (3)
  - Haemarthrosis [None]
  - Haemarthrosis [Not Recovered/Not Resolved]
  - Arthralgia [None]

NARRATIVE: CASE EVENT DATE: 20241024
